FAERS Safety Report 25306162 (Version 2)
Quarter: 2025Q2

REPORT INFORMATION
  Report Type: Report from Study
  Country: BR (occurrence: BR)
  Receive Date: 20250513
  Receipt Date: 20250612
  Transmission Date: 20250717
  Serious: Yes (Other)
  Sender: NOVARTIS
  Company Number: BR-002147023-NVSC2025BR076061

PATIENT
  Sex: Female

DRUGS (1)
  1. COSENTYX [Suspect]
     Active Substance: SECUKINUMAB
     Indication: Psoriatic arthropathy
     Route: 065

REACTIONS (5)
  - Lipoedema [Unknown]
  - Spinal cord disorder [Unknown]
  - Peripheral swelling [Unknown]
  - Hypoaesthesia [Unknown]
  - Influenza [Unknown]
